FAERS Safety Report 19960055 (Version 1)
Quarter: 2021Q4

REPORT INFORMATION
  Report Type: Spontaneous
  Country: US (occurrence: US)
  Receive Date: 20211015
  Receipt Date: 20211015
  Transmission Date: 20220303
  Serious: Yes (Hospitalization)
  Sender: FDA-Public Use
  Company Number: None

PATIENT
  Age: 65 Year
  Sex: Female
  Weight: 93.15 kg

DRUGS (5)
  1. AKYNZEO [Suspect]
     Active Substance: NETUPITANT\PALONOSETRON HYDROCHLORIDE
     Indication: Rectal cancer
     Dosage: ?          OTHER FREQUENCY:EVERY 2 WEEKS;
     Route: 042
     Dates: start: 20210914
  2. ELOXATIN [Concomitant]
     Active Substance: OXALIPLATIN
  3. LEUCOVORIN [Concomitant]
     Active Substance: LEUCOVORIN
  4. ADRUCIL [Concomitant]
     Active Substance: FLUOROURACIL
  5. FENTANYL [Concomitant]
     Active Substance: FENTANYL

REACTIONS (1)
  - Hospitalisation [None]

NARRATIVE: CASE EVENT DATE: 20211015
